FAERS Safety Report 18304629 (Version 4)
Quarter: 2020Q4

REPORT INFORMATION
  Report Type: Spontaneous
  Country: PL (occurrence: PL)
  Receive Date: 20200924
  Receipt Date: 20201123
  Transmission Date: 20210113
  Serious: Yes (Other)
  Sender: FDA-Public Use
  Company Number: PL-BEH-2020122579

PATIENT
  Age: 34 Year
  Sex: Female
  Weight: 74 kg

DRUGS (7)
  1. INSUMAN BASAL [Concomitant]
     Active Substance: INSULIN HUMAN
     Indication: GESTATIONAL DIABETES
     Dosage: 15 UNITS, EVERY EVENING
     Route: 030
     Dates: start: 202006, end: 20200714
  2. LETROX [Concomitant]
     Active Substance: LEVOTHYROXINE SODIUM
     Dosage: 25 NANOGRAM
     Route: 048
     Dates: start: 20200715
  3. RHOPHYLAC [Suspect]
     Active Substance: HUMAN RHO(D) IMMUNE GLOBULIN
     Dosage: UNK
     Route: 065
  4. LETROX [Concomitant]
     Active Substance: LEVOTHYROXINE SODIUM
     Indication: HYPOTHYROIDISM
     Dosage: 25 NANOGRAM
     Route: 048
     Dates: start: 201906, end: 201911
  5. ANTI-D IMMUNOGLOBULIN [Suspect]
     Active Substance: HUMAN RHO(D) IMMUNE GLOBULIN
     Dosage: 150 MICROGRAM, TOT
     Route: 065
  6. LETROX [Concomitant]
     Active Substance: LEVOTHYROXINE SODIUM
     Dosage: 50NG ALTERNATING EVERY OTHER DAY WITH 25NG AFTER MID-PREGANCY ONLY 50NG DAILY
     Route: 048
     Dates: start: 201911, end: 20200714
  7. RHOPHYLAC [Suspect]
     Active Substance: HUMAN RHO(D) IMMUNE GLOBULIN
     Dosage: UNK
     Route: 065

REACTIONS (2)
  - Antibody test positive [Unknown]
  - Muscle tightness [Recovered/Resolved]

NARRATIVE: CASE EVENT DATE: 20200715
